FAERS Safety Report 10966701 (Version 2)
Quarter: 2015Q1

REPORT INFORMATION
  Report Type: Spontaneous
  Country: NO (occurrence: NO)
  Receive Date: 20150330
  Receipt Date: 20150330
  Transmission Date: 20150721
  Serious: Yes (Other)
  Sender: FDA-Public Use
  Company Number: NO-WATSON-2015-06341

PATIENT
  Age: 58 Year
  Sex: Male

DRUGS (5)
  1. HALOPERIDOL (UNKNOWN) [Suspect]
     Active Substance: HALOPERIDOL
     Indication: MANIA
     Dosage: 2 MG, UNKNOWN
     Route: 065
  2. CARBAMAZEPINE (UNKNOWN) [Suspect]
     Active Substance: CARBAMAZEPINE
     Indication: MANIA
     Dosage: 600 MG, UNK
     Route: 065
  3. DIAZEPAM (UNKNOWN) [Suspect]
     Active Substance: DIAZEPAM
     Indication: MANIA
     Dosage: 40 MG, UNKNOWN
     Route: 065
  4. OLANZAPINE (UNKNOWN) [Suspect]
     Active Substance: OLANZAPINE
     Indication: MANIA
     Dosage: 30 MG, UNK
     Route: 065
  5. HALOPERIDOL (UNKNOWN) [Suspect]
     Active Substance: HALOPERIDOL
     Dosage: 6 MG, UNKNOWN
     Route: 065

REACTIONS (5)
  - Mania [Recovering/Resolving]
  - Dysphoria [Unknown]
  - Depressive symptom [Unknown]
  - Overdose [Unknown]
  - Agitation [Unknown]
